FAERS Safety Report 7301718-3 (Version None)
Quarter: 2011Q1

REPORT INFORMATION
  Report Type: 
  Country: None (occurrence: None)
  Receive Date: 20110218
  Receipt Date: 20110215
  Transmission Date: 20110831
  Serious: Yes (Hospitalization)
  Sender: FDA-Public Use
  Company Number: NL-ABBOTT-10P-114-0673844-00

PATIENT
  Sex: Female
  Weight: 65 kg

DRUGS (16)
  1. LUCRIN DEPOT 3.75 [Suspect]
     Indication: ENDOMETRIOSIS
     Route: 058
     Dates: start: 20100902, end: 20101101
  2. CONTRALUM ULTRA [Concomitant]
     Indication: PRODUCT USED FOR UNKNOWN INDICATION
     Dosage: ACCORDING TO PRESCRIPTION - DERMAL
  3. LUCRIN DEPOT 11.25 MG [Suspect]
     Indication: ENDOMETRIOSIS
     Route: 058
     Dates: start: 20090930
  4. DESLORATADINE [Concomitant]
     Indication: PRODUCT USED FOR UNKNOWN INDICATION
     Route: 048
  5. FLUCLOXACIL [Concomitant]
     Indication: PRODUCT USED FOR UNKNOWN INDICATION
     Route: 048
  6. HYDROCORTISON [Concomitant]
     Indication: PRODUCT USED FOR UNKNOWN INDICATION
     Dosage: 10 MG/G; ONCE DAILY - DERMAL
  7. METRONIDAZOLE [Concomitant]
     Indication: PRODUCT USED FOR UNKNOWN INDICATION
  8. NITROFURANTOINE [Concomitant]
     Indication: URINARY TRACT INFECTION
     Route: 048
  9. MOVIPREP [Concomitant]
     Indication: PRODUCT USED FOR UNKNOWN INDICATION
  10. TRAMADOL [Concomitant]
     Indication: PRODUCT USED FOR UNKNOWN INDICATION
     Route: 048
  11. LUCRIN DEPOT 3.75 [Suspect]
     Route: 058
  12. ETHINYLESTRADIO/LEVONOR GESTREL [Concomitant]
     Indication: PRODUCT USED FOR UNKNOWN INDICATION
     Dosage: 30/150 MCG
  13. RANITIDINE [Concomitant]
     Indication: PRODUCT USED FOR UNKNOWN INDICATION
     Route: 048
  14. SALICYLIC ACID VASELINE OINTMENT 20% [Concomitant]
     Indication: PRODUCT USED FOR UNKNOWN INDICATION
     Dosage: ONCE DAILY - DERMAL
  15. OFLOXACIN [Concomitant]
     Indication: PRODUCT USED FOR UNKNOWN INDICATION
     Route: 048
  16. OXYCODONE HCL [Concomitant]
     Indication: ENDOMETRIOSIS
     Route: 048

REACTIONS (7)
  - URINARY TRACT INFECTION [None]
  - BONE PAIN [None]
  - MALAISE [None]
  - ENDOMETRIOSIS [None]
  - ABDOMINAL PAIN [None]
  - IN VITRO FERTILISATION [None]
  - WEIGHT DECREASED [None]
